FAERS Safety Report 9526799 (Version 3)
Quarter: 2013Q4

REPORT INFORMATION
  Report Type: Spontaneous
  Country: JP (occurrence: JP)
  Receive Date: 20130916
  Receipt Date: 20131113
  Transmission Date: 20140711
  Serious: Yes (Hospitalization)
  Sender: FDA-Public Use
  Company Number: JP-GLAXOSMITHKLINE-B0921581A

PATIENT
  Age: 15 Day
  Sex: Female
  Weight: 4 kg

DRUGS (2)
  1. ZOVIRAX [Suspect]
     Indication: MENINGITIS HERPES
     Dosage: 400MG PER DAY
     Route: 042
     Dates: start: 20130905, end: 20130905
  2. UNKNOWN DRUG [Concomitant]
     Route: 065

REACTIONS (14)
  - Pyelocaliectasis [Unknown]
  - Injection site erosion [Recovered/Resolved]
  - Injection site vesicles [Recovered/Resolved]
  - Blister [Recovered/Resolved]
  - Injection site erythema [Unknown]
  - Injection site swelling [Unknown]
  - Injection site vasculitis [Unknown]
  - Blood lactate dehydrogenase increased [Unknown]
  - Injection site inflammation [Unknown]
  - Hepatic function abnormal [Unknown]
  - Local swelling [Unknown]
  - Scab [Unknown]
  - Injection site extravasation [Unknown]
  - Overdose [Unknown]
